FAERS Safety Report 4414072-1 (Version None)
Quarter: 2004Q3

REPORT INFORMATION
  Report Type: 
  Country: None (occurrence: None)
  Receive Date: 20040728
  Receipt Date: 20040722
  Transmission Date: 20050211
  Serious: Yes (Life-Threatening, Hospitalization)
  Sender: FDA-Public Use
  Company Number: STA-AE-04-MTX-273

PATIENT
  Age: 66 Year

DRUGS (9)
  1. METHOTREXATE [Suspect]
     Indication: RHEUMATOID ARTHRITIS
     Dosage: 5 MG 2X PER 1 WK, ORAL
     Route: 048
     Dates: start: 20040602, end: 20040610
  2. MOBIC (MELOXCAM) [Concomitant]
  3. RIMATIL (BUCILLAMINE) [Concomitant]
  4. PREDNISOLONE [Concomitant]
  5. OMEPRAZOLE [Concomitant]
  6. BENET (RISEDRONIC ACID) [Concomitant]
  7. MILNACIPRAN (MILNACIPRAN) [Concomitant]
  8. DEPAS (ETIZOLAM) [Concomitant]
  9. NITRODERM [Concomitant]

REACTIONS (6)
  - ASTHENIA [None]
  - DRUG HYPERSENSITIVITY [None]
  - PANCYTOPENIA [None]
  - PHARYNGOLARYNGEAL PAIN [None]
  - STEVENS-JOHNSON SYNDROME [None]
  - STOMATITIS [None]
